FAERS Safety Report 5130915-0 (Version None)
Quarter: 2006Q3

REPORT INFORMATION
  Report Type: 
  Country: None (occurrence: None)
  Receive Date: 20060829
  Receipt Date: 20060501
  Transmission Date: 20061208
  Serious: No
  Sender: FDA-Public Use
  Company Number: PHEH2006US04659

PATIENT
  Sex: Male

DRUGS (1)
  1. EXJADE [Suspect]
     Indication: SERUM FERRITIN INCREASED
     Dosage: UNK, UNK, ORAL
     Route: 048
     Dates: start: 20060208

REACTIONS (4)
  - CHEILITIS [None]
  - LIP PAIN [None]
  - STOMATITIS [None]
  - VERTIGO [None]
